FAERS Safety Report 13423577 (Version 1)
Quarter: 2017Q2

REPORT INFORMATION
  Report Type: Spontaneous
  Country: US (occurrence: US)
  Receive Date: 20170410
  Receipt Date: 20170410
  Transmission Date: 20170830
  Serious: No
  Sender: FDA-Public Use
  Company Number: US-BIOGEN-2017BI00383579

PATIENT
  Sex: Female

DRUGS (1)
  1. AVONEX [Suspect]
     Active Substance: INTERFERON BETA-1A
     Indication: MULTIPLE SCLEROSIS
     Route: 030
     Dates: start: 201702

REACTIONS (6)
  - Back pain [Unknown]
  - Asthenia [Unknown]
  - Muscular weakness [Unknown]
  - Urinary tract infection [Unknown]
  - Spinal pain [Unknown]
  - Depressed mood [Unknown]
